FAERS Safety Report 4924367-0 (Version None)
Quarter: 2006Q1

REPORT INFORMATION
  Report Type: 
  Country: None (occurrence: None)
  Receive Date: 20060221
  Receipt Date: 20060207
  Transmission Date: 20060701
  Serious: Yes (Hospitalization, Other)
  Sender: FDA-Public Use
  Company Number: 2003031786

PATIENT
  Age: 52 Year
  Sex: Female

DRUGS (6)
  1. ZIPRASIDONE               (CAPS) (ZIPRASIDONE) [Suspect]
     Indication: ILL-DEFINED DISORDER
     Dosage: 160 MG (DAILY),
  2. FLUOXETINE [Concomitant]
  3. LAMOTRIGINE [Concomitant]
  4. NORTRIPTYLINE HCL [Concomitant]
  5. CLONAZEPAM [Concomitant]
  6. POTASSIUM CHLORIDE [Concomitant]

REACTIONS (11)
  - BLOOD MAGNESIUM INCREASED [None]
  - BLOOD PH INCREASED [None]
  - CONFUSIONAL STATE [None]
  - COORDINATION ABNORMAL [None]
  - DRUG INEFFECTIVE [None]
  - ELECTROCARDIOGRAM ABNORMAL [None]
  - ELECTROCARDIOGRAM QT CORRECTED INTERVAL PROLONGED [None]
  - FALL [None]
  - HYPOKALAEMIA [None]
  - STUPOR [None]
  - TREATMENT NONCOMPLIANCE [None]
